FAERS Safety Report 24415175 (Version 2)
Quarter: 2024Q4

REPORT INFORMATION
  Report Type: Spontaneous
  Country: ES (occurrence: ES)
  Receive Date: 20241009
  Receipt Date: 20241106
  Transmission Date: 20250114
  Serious: Yes (Other)
  Sender: TEVA
  Company Number: ES-TEVA-VS-3250065

PATIENT
  Age: 51 Year
  Sex: Male

DRUGS (6)
  1. BORTEZOMIB [Suspect]
     Active Substance: BORTEZOMIB
     Indication: Waldenstrom^s macroglobulinaemia
     Dosage: SECOND LINE THERAPY- STARTED FOR 6 CYCLES
     Route: 065
  2. RITUXIMAB [Suspect]
     Active Substance: RITUXIMAB
     Indication: Waldenstrom^s macroglobulinaemia
     Dosage: SECOND LINE THERAPY- STARTED FOR 6 CYCLES
     Route: 065
  3. RITUXIMAB [Suspect]
     Active Substance: RITUXIMAB
     Indication: Waldenstrom^s macroglobulinaemia
     Dosage: GIVEN FOR 6 CYCLES - FIRST LINE THERAPY
     Route: 065
  4. IBRUTINIB [Suspect]
     Active Substance: IBRUTINIB
     Indication: Waldenstrom^s macroglobulinaemia
     Route: 065
  5. DEXAMETHASONE [Suspect]
     Active Substance: DEXAMETHASONE
     Indication: Waldenstrom^s macroglobulinaemia
     Dosage: GIVEN FOR 6 CYCLES - FIRST LINE THERAPY
     Route: 065
  6. DEXAMETHASONE [Suspect]
     Active Substance: DEXAMETHASONE
     Indication: Waldenstrom^s macroglobulinaemia
     Dosage: SECOND LINE THERAPY- STARTED FOR 6 CYCLES
     Route: 065

REACTIONS (5)
  - Herpes simplex reactivation [Recovering/Resolving]
  - Giardiasis [Recovered/Resolved]
  - Enteritis infectious [Recovered/Resolved]
  - Malignant syphilis [Recovered/Resolved]
  - Drug ineffective [Unknown]
